FAERS Safety Report 6175708-0 (Version None)
Quarter: 2009Q2

REPORT INFORMATION
  Report Type: 
  Country: None (occurrence: None)
  Receive Date: 20090501
  Receipt Date: 20090422
  Transmission Date: 20091009
  Serious: Yes (Death, Hospitalization, Other)
  Sender: FDA-Public Use
  Company Number: ES-WYE-G03550109

PATIENT
  Age: 64 Year
  Sex: Male

DRUGS (1)
  1. TORISEL [Suspect]
     Indication: RENAL CANCER METASTATIC
     Route: 042
     Dates: start: 20090201

REACTIONS (6)
  - CEREBRAL INFARCTION [None]
  - LOCKED-IN SYNDROME [None]
  - MELAENA [None]
  - MICROCYTIC ANAEMIA [None]
  - PNEUMONITIS [None]
  - THERAPEUTIC RESPONSE UNEXPECTED [None]
